FAERS Safety Report 11628190 (Version 1)
Quarter: 2015Q4

REPORT INFORMATION
  Report Type: Spontaneous
  Country: IT (occurrence: IT)
  Receive Date: 20151014
  Receipt Date: 20151014
  Transmission Date: 20160304
  Serious: Yes (Other)
  Sender: FDA-Public Use
  Company Number: IT-ACTAVIS-2015-21634

PATIENT
  Age: 60 Year
  Sex: Female

DRUGS (6)
  1. OXALIPLATIN (UNKNOWN) [Suspect]
     Active Substance: OXALIPLATIN
     Indication: ADENOCARCINOMA OF COLON
     Dosage: 100 MG, TOTAL
     Route: 042
     Dates: start: 20150727, end: 20150727
  2. FLUOROURACIL. [Suspect]
     Active Substance: FLUOROURACIL
     Indication: ADENOCARCINOMA OF COLON
     Dosage: 500 MG, TOTAL
     Route: 040
     Dates: start: 20150727, end: 20150727
  3. FLUOROURACIL. [Suspect]
     Active Substance: FLUOROURACIL
     Dosage: 3000 MG, TOTAL
     Route: 041
     Dates: start: 20150727, end: 20150727
  4. LEVOFOLINIC ACID [Concomitant]
     Active Substance: LEVOLEUCOVORIN
     Indication: PRODUCT USED FOR UNKNOWN INDICATION
     Dosage: 250 MG, UNKNOWN
     Route: 042
     Dates: start: 20150727, end: 20150727
  5. ERBITUX [Suspect]
     Active Substance: CETUXIMAB
     Indication: ADENOCARCINOMA OF COLON
     Dosage: 500 MG, TOTAL
     Route: 042
     Dates: start: 20150727, end: 20150727
  6. CARDICOR [Concomitant]
     Active Substance: BISOPROLOL
     Indication: PRODUCT USED FOR UNKNOWN INDICATION
     Dosage: UNK UNK, UNKNOWN
     Route: 065

REACTIONS (1)
  - Neutropenia [Recovering/Resolving]

NARRATIVE: CASE EVENT DATE: 20150730
